FAERS Safety Report 12503271 (Version 1)
Quarter: 2016Q2

REPORT INFORMATION
  Report Type: Spontaneous
  Country: US (occurrence: US)
  Receive Date: 20160628
  Receipt Date: 20160628
  Transmission Date: 20160815
  Serious: No
  Sender: FDA-Public Use
  Company Number: US-FERRINGPH-2016FE00137

PATIENT
  Sex: Female

DRUGS (4)
  1. MENOPUR [Concomitant]
     Active Substance: FOLLICLE STIMULATING HORMONE BETA POLYPEPTIDE\LUTROPIN ALFA
  2. BRAVELLE [Suspect]
     Active Substance: FOLLITROPIN\UROFOLLITROPIN
     Indication: OOCYTE HARVEST
     Dosage: UNK
     Dates: start: 201503
  3. NOVAREL [Concomitant]
     Active Substance: CHORIOGONADOTROPIN ALFA
  4. CETROTIDE                          /01453601/ [Concomitant]

REACTIONS (1)
  - Drug ineffective [Unknown]

NARRATIVE: CASE EVENT DATE: 2015
